FAERS Safety Report 18083420 (Version 1)
Quarter: 2020Q3

REPORT INFORMATION
  Report Type: Spontaneous
  Country: BR (occurrence: BR)
  Receive Date: 20200729
  Receipt Date: 20200729
  Transmission Date: 20201103
  Serious: Yes (Other)
  Sender: FDA-Public Use
  Company Number: BR-LUPIN PHARMACEUTICALS INC.-2020-03868

PATIENT
  Age: 57 Year
  Sex: Male

DRUGS (21)
  1. ACTILYSE [Concomitant]
     Active Substance: ALTEPLASE
     Dosage: 10 MILLIGRAM, UNK
     Route: 042
  2. ATROPINE. [Concomitant]
     Active Substance: ATROPINE
     Indication: BRADYCARDIA
     Dosage: UNK
     Route: 065
  3. ADENOSINE. [Concomitant]
     Active Substance: ADENOSINE
     Indication: SUPRAVENTRICULAR TACHYCARDIA
     Dosage: 12 MILLIGRAM, UNK
     Route: 065
  4. NORADRENALINE (NORPINEPHRINE) [Concomitant]
     Indication: OXYGEN SATURATION ABNORMAL
  5. HEPARIN [Concomitant]
     Active Substance: HEPARIN SODIUM
     Indication: ANTICOAGULANT THERAPY
     Dosage: UNK
     Route: 042
  6. SIMVASTATIN. [Concomitant]
     Active Substance: SIMVASTATIN
     Indication: PRODUCT USED FOR UNKNOWN INDICATION
     Route: 065
  7. CEFTAROLINE FOSAMIL [Concomitant]
     Active Substance: CEFTAROLINE FOSAMIL
     Indication: COVID-19
     Dosage: UNK
     Route: 065
  8. ATROPINE. [Concomitant]
     Active Substance: ATROPINE
     Indication: OXYGEN SATURATION ABNORMAL
  9. ADRENALINE [EPINEPHRINE] [Concomitant]
     Active Substance: EPINEPHRINE
     Indication: HYPOTENSION
  10. ACTILYSE [Concomitant]
     Active Substance: ALTEPLASE
     Indication: PULMONARY EMBOLISM
     Dosage: 18 MILLIGRAM, UNK
     Route: 042
  11. NORADRENALINE (NORPINEPHRINE) [Concomitant]
     Indication: BRADYCARDIA
     Dosage: UNK
     Route: 065
  12. ADRENALINE [EPINEPHRINE] [Concomitant]
     Active Substance: EPINEPHRINE
     Indication: OXYGEN SATURATION ABNORMAL
  13. VALSARTAN. [Concomitant]
     Active Substance: VALSARTAN
     Indication: PRODUCT USED FOR UNKNOWN INDICATION
     Dosage: UNK
     Route: 065
  14. ATROPINE. [Concomitant]
     Active Substance: ATROPINE
     Indication: HYPOTENSION
  15. NORADRENALINE (NORPINEPHRINE) [Concomitant]
     Indication: HYPOTENSION
  16. AMLODIPINE [Concomitant]
     Active Substance: AMLODIPINE BESYLATE
     Indication: HYPERTENSION
     Dosage: UNK
     Route: 065
  17. ASPIRINE [Concomitant]
     Active Substance: ASPIRIN
     Indication: PRODUCT USED FOR UNKNOWN INDICATION
     Dosage: UNK
     Route: 065
  18. ADRENALINE [EPINEPHRINE] [Concomitant]
     Active Substance: EPINEPHRINE
     Indication: BRADYCARDIA
     Dosage: UNK
     Route: 065
  19. HYDROXYCHLOROQUINE [Suspect]
     Active Substance: HYDROXYCHLOROQUINE
     Indication: COVID-19
     Dosage: UNK
     Route: 065
  20. AZITHROMYCIN ANHYDROUS. [Suspect]
     Active Substance: AZITHROMYCIN ANHYDROUS
     Indication: COVID-19
     Dosage: UNK
     Route: 065
  21. METFORMIN [Concomitant]
     Active Substance: METFORMIN HYDROCHLORIDE
     Indication: DIABETES MELLITUS
     Route: 065

REACTIONS (1)
  - Off label use [Unknown]
